FAERS Safety Report 17482385 (Version 2)
Quarter: 2020Q1

REPORT INFORMATION
  Report Type: Spontaneous
  Country: ES (occurrence: ES)
  Receive Date: 20200302
  Receipt Date: 20200320
  Transmission Date: 20200409
  Serious: Yes (Other)
  Sender: FDA-Public Use
  Company Number: ES-TEVA-2020-ES-1193291

PATIENT
  Age: 45 Year
  Sex: Male

DRUGS (2)
  1. VALSARTAN- HYDROCHLOROTHIAZIDE [Concomitant]
     Route: 065
  2. FLUOXETINE [Suspect]
     Active Substance: FLUOXETINE HYDROCHLORIDE
     Dosage: 60 MILLIGRAM DAILY;
     Route: 065

REACTIONS (1)
  - Ventricular extrasystoles [Recovered/Resolved]
